FAERS Safety Report 7091692-X (Version None)
Quarter: 2010Q4

REPORT INFORMATION
  Report Type: 
  Country: None (occurrence: None)
  Receive Date: 20101109
  Receipt Date: 20090811
  Transmission Date: 20110411
  Serious: No
  Sender: FDA-Public Use
  Company Number: US-KINGPHARMUSA00001-K200900980

PATIENT

DRUGS (1)
  1. FLECTOR [Suspect]
     Dosage: UNK

REACTIONS (1)
  - CHEST PAIN [None]
